FAERS Safety Report 8483002-8 (Version None)
Quarter: 2012Q3

REPORT INFORMATION
  Report Type: 
  Country: None (occurrence: None)
  Receive Date: 20120702
  Receipt Date: 20120618
  Transmission Date: 20120928
  Serious: No
  Sender: FDA-Public Use
  Company Number: US-ASTRAZENECA-2012SE40842

PATIENT
  Sex: Female

DRUGS (2)
  1. OTHER [Concomitant]
  2. NEXIUM [Suspect]
     Indication: HIATUS HERNIA
     Route: 048

REACTIONS (2)
  - OFF LABEL USE [None]
  - MEDICATION RESIDUE [None]
